FAERS Safety Report 6498186-0 (Version None)
Quarter: 2009Q4

REPORT INFORMATION
  Report Type: 
  Country: None (occurrence: None)
  Receive Date: 20091215
  Receipt Date: 20091210
  Transmission Date: 20100525
  Serious: Yes (Hospitalization, Other)
  Sender: FDA-Public Use
  Company Number: US-B.I. PHARMACEUTICALS,INC./RIDGEFIELD-2009-BP-00915BP

PATIENT
  Sex: Female

DRUGS (12)
  1. SPIRIVA [Suspect]
     Indication: EMPHYSEMA
     Dosage: 18 MCG
     Route: 055
     Dates: start: 20070101
  2. SPIRIVA [Suspect]
     Indication: BRONCHITIS CHRONIC
  3. ADVAIR DISKUS 100/50 [Concomitant]
     Indication: EMPHYSEMA
     Dates: start: 20060101
  4. QUINAPRIL [Concomitant]
     Indication: HYPERTENSION
  5. ACCURETIC [Concomitant]
     Indication: EMPHYSEMA
  6. PREMPRO [Concomitant]
     Indication: MENOPAUSE
  7. LOPRESSOR [Concomitant]
     Indication: HYPERTENSION
  8. CALCIUM [Concomitant]
     Indication: PROPHYLAXIS AGAINST TRANSPLANT REJECTION
     Dates: start: 20090522
  9. MAGNESIUM [Concomitant]
     Indication: PROPHYLAXIS AGAINST TRANSPLANT REJECTION
     Dates: start: 20090522
  10. VITAMIN D [Concomitant]
     Indication: PROPHYLAXIS AGAINST TRANSPLANT REJECTION
     Dates: start: 20090522
  11. PROGRAF [Concomitant]
     Indication: PROPHYLAXIS AGAINST TRANSPLANT REJECTION
     Dates: start: 20090522
  12. OMEPRAZOLE [Concomitant]
     Indication: PROPHYLAXIS
     Dates: start: 20090522

REACTIONS (7)
  - ADMINISTRATION SITE REACTION [None]
  - BRONCHITIS [None]
  - DYSPNOEA [None]
  - EMPHYSEMA [None]
  - HYPERTENSION [None]
  - LUNG TRANSPLANT REJECTION [None]
  - PNEUMONIA [None]
